FAERS Safety Report 9291530 (Version 1)
Quarter: 2013Q2

REPORT INFORMATION
  Report Type: Spontaneous
  Country: US (occurrence: US)
  Receive Date: 20130515
  Receipt Date: 20130515
  Transmission Date: 20140414
  Serious: Yes (Death)
  Sender: FDA-Public Use
  Company Number: US-GLAXOSMITHKLINE-A1023228A

PATIENT
  Age: 90 Year
  Sex: Male

DRUGS (19)
  1. ADVAIR [Suspect]
     Indication: ASTHMA
     Dosage: 1PUFF TWICE PER DAY
     Route: 055
     Dates: start: 201212
  2. LOVAZA [Suspect]
     Indication: PRODUCT USED FOR UNKNOWN INDICATION
     Dosage: 2CAP PER DAY
     Route: 048
     Dates: start: 201210
  3. AMLODIPINE [Concomitant]
  4. LEVOFLOXACIN [Concomitant]
  5. KEFLEX [Concomitant]
  6. ROBITUSSIN AC [Concomitant]
  7. COMBIGAN [Concomitant]
     Route: 047
  8. DIGOXIN [Concomitant]
  9. LASIX [Concomitant]
  10. AMARYL [Concomitant]
  11. LUMIGAN [Concomitant]
  12. METOPROLOL [Concomitant]
  13. PROTONIX [Concomitant]
  14. POTASSIUM [Concomitant]
  15. PRO-AIR [Concomitant]
  16. WARFARIN [Concomitant]
  17. ATENOLOL [Concomitant]
  18. BENAZEPRIL [Concomitant]
  19. LOVASTATIN [Concomitant]

REACTIONS (1)
  - Death [Fatal]
